FAERS Safety Report 16297043 (Version 5)
Quarter: 2019Q4

REPORT INFORMATION
  Report Type: Report from Study
  Country: FR (occurrence: FR)
  Receive Date: 20190510
  Receipt Date: 20191218
  Transmission Date: 20200122
  Serious: Yes (Other)
  Sender: FDA-Public Use
  Company Number: FR-INCYTE CORPORATION-2019IN004766

PATIENT

DRUGS (12)
  1. JAKAVI [Suspect]
     Active Substance: RUXOLITINIB
     Dosage: 40 OT, UNK
     Route: 048
     Dates: start: 20190321, end: 20190409
  2. JAKAVI [Suspect]
     Active Substance: RUXOLITINIB
     Dosage: 20 OT, UNK
     Route: 048
     Dates: start: 20190410
  3. BECILAN [Concomitant]
     Active Substance: PYRIDOXINE
     Indication: PROPHYLAXIS
     Dosage: 250 OT
     Route: 065
     Dates: start: 20190325, end: 20190411
  4. JAKAVI [Suspect]
     Active Substance: RUXOLITINIB
     Indication: POLYCYTHAEMIA VERA
     Dosage: 20 OT, UNK
     Route: 048
     Dates: start: 20180711, end: 20190320
  5. NEORECORMON [Concomitant]
     Active Substance: ERYTHROPOIETIN
     Indication: ANAEMIA PROPHYLAXIS
     Dosage: 20 OT, UNK
     Route: 065
     Dates: start: 20190624
  6. PNEUMOCOCCAL VACCINE POLYVALENT NOS [Concomitant]
     Active Substance: PNEUMOCOCCAL VACCINE POLYVALENT
     Indication: PROPHYLAXIS
     Dosage: 1 OT
     Route: 065
     Dates: start: 20181014, end: 20181014
  7. CORTANCYL [Concomitant]
     Active Substance: PREDNISONE
     Indication: POLYMYALGIA RHEUMATICA
     Dosage: 15 OT
     Route: 065
     Dates: start: 20190426
  8. BISOPROLOL [Concomitant]
     Active Substance: BISOPROLOL
     Indication: HYPERTENSION
     Dosage: 2.5 OT, UNK
     Route: 065
     Dates: start: 1999, end: 20190322
  9. LEVOTHYROX [Concomitant]
     Active Substance: LEVOTHYROXINE
     Indication: HYPOTHYROIDISM
     Dosage: 75 OT, UNK
     Route: 065
     Dates: start: 2002
  10. METHOTREXATE. [Concomitant]
     Active Substance: METHOTREXATE
     Indication: POLYMYALGIA RHEUMATICA
     Dosage: 10 OT
     Route: 065
     Dates: start: 20190426
  11. RAMIPRIL. [Concomitant]
     Active Substance: RAMIPRIL
     Indication: HYPERTENSION
     Dosage: 5 OT
     Route: 065
     Dates: start: 1999
  12. UVEDOSE [Concomitant]
     Active Substance: CHOLECALCIFEROL
     Indication: POLYMYALGIA RHEUMATICA
     Dosage: 100000 OT
     Route: 065
     Dates: start: 20190710

REACTIONS (8)
  - Lymph node tuberculosis [Not Recovered/Not Resolved]
  - Paronychia [Recovered/Resolved]
  - Lymphatic system neoplasm [Recovered/Resolved]
  - Osteoporosis [Not Recovered/Not Resolved]
  - Vertigo [Recovered/Resolved]
  - Anaemia [Recovered/Resolved]
  - General physical condition abnormal [Recovered/Resolved]
  - Chest pain [Recovered/Resolved]

NARRATIVE: CASE EVENT DATE: 201810
